FAERS Safety Report 7959129-3 (Version None)
Quarter: 2011Q4

REPORT INFORMATION
  Report Type: 
  Country: None (occurrence: None)
  Receive Date: 20111206
  Receipt Date: 20110810
  Transmission Date: 20120403
  Serious: No
  Sender: FDA-Public Use
  Company Number: US-ABBOTT-11P-163-0726463-00

PATIENT
  Age: 70 Year
  Sex: Female

DRUGS (3)
  1. CEFDINIR [Suspect]
     Indication: BRONCHITIS
     Dates: start: 20110502
  2. BYSTOLIC [Suspect]
     Indication: HYPERTENSION
     Route: 048
     Dates: start: 20110502, end: 20110508
  3. BYSTOLIC [Suspect]
     Route: 048
     Dates: start: 20110401, end: 20110401

REACTIONS (5)
  - HEART RATE INCREASED [None]
  - HEADACHE [None]
  - HEART RATE IRREGULAR [None]
  - HYPOAESTHESIA [None]
  - PAIN IN EXTREMITY [None]
